FAERS Safety Report 7660457-X (Version None)
Quarter: 2011Q3

REPORT INFORMATION
  Report Type: 
  Country: None (occurrence: None)
  Receive Date: 20110805
  Receipt Date: 20110729
  Transmission Date: 20111222
  Serious: Yes (Other)
  Sender: FDA-Public Use
  Company Number: FI-AMGEN-FINCT2011035953

PATIENT
  Age: 72 Year
  Sex: Male

DRUGS (17)
  1. DENOSUMAB [Suspect]
     Indication: PROSTATE CANCER
  2. PANACOD [Concomitant]
     Indication: ARTHRODESIS
     Dosage: UNK UNK, TID
     Route: 048
  3. ARCOXIA [Concomitant]
     Indication: NECK PAIN
     Dosage: 90 MG, QD
     Route: 048
     Dates: end: 20110215
  4. ATACAND HCT [Concomitant]
     Indication: HYPERTENSION
     Dosage: UNK UNK, QD
     Route: 048
  5. VITAMIN D [Concomitant]
     Dosage: 400 IU, BID
     Route: 048
  6. ORUDIS [Concomitant]
     Indication: OSTEOARTHRITIS
     Dosage: 50 MG, BID
     Route: 048
  7. PRIMASPAN [Concomitant]
     Dosage: 100 MG, UNK
     Route: 048
  8. PANTOPRAZOLE [Concomitant]
     Indication: NASOPHARYNGITIS
     Dosage: 40 MG, UNK
     Route: 048
  9. BEMETSON-K [Concomitant]
     Indication: ECZEMA
     Dosage: UNK UNK, PRN
  10. ZOPINOX [Concomitant]
     Indication: INSOMNIA
     Dosage: 7.5 MG, UNK
     Route: 048
  11. EXPROS [Concomitant]
     Indication: OSTEOARTHRITIS
     Dosage: 0.4 MG, UNK
     Route: 048
  12. DESLORATADINE [Concomitant]
     Indication: SINUSITIS
     Dosage: 5 MG, UNK
     Route: 048
  13. CALCIUM ACETATE [Concomitant]
     Dosage: 500 MG, BID
     Route: 048
  14. NASONEX [Concomitant]
     Indication: SINUSITIS
     Dosage: 100 MG, UNK
     Route: 050
  15. FELODIPINE [Concomitant]
     Indication: HYPERTENSION
     Dosage: UNK UNK, QD
     Route: 048
  16. CLOTRIMAZOLE [Concomitant]
     Dosage: UNK UNK, BID
  17. PANTOPRAZOLE [Concomitant]
     Indication: DYSPEPSIA
     Dosage: 40 MG, UNK
     Route: 048

REACTIONS (1)
  - PAIN IN JAW [None]
